FAERS Safety Report 9601777 (Version 1)
Quarter: 2013Q4

REPORT INFORMATION
  Report Type: Spontaneous
  Country: US (occurrence: US)
  Receive Date: 20131007
  Receipt Date: 20131007
  Transmission Date: 20140711
  Serious: Yes (Hospitalization)
  Sender: FDA-Public Use
  Company Number: US-BAYER-2013-120621

PATIENT
  Age: 31 Year
  Sex: Female

DRUGS (12)
  1. YASMIN [Suspect]
  2. METHOTREXATE [Concomitant]
  3. TRAZODONE [Concomitant]
  4. ZYRTEC [Concomitant]
  5. LEXAPRO [Concomitant]
  6. KEFLEX [Concomitant]
  7. TYLENOL #3 [Concomitant]
  8. KLONOPIN [Concomitant]
  9. LEVAQUIN [Concomitant]
  10. VICODIN [Concomitant]
  11. OLUX [Concomitant]
  12. CLOBEX [Concomitant]

REACTIONS (1)
  - Thrombophlebitis superficial [None]
